FAERS Safety Report 10214026 (Version 1)
Quarter: 2014Q2

REPORT INFORMATION
  Report Type: Spontaneous
  Country: CN (occurrence: CN)
  Receive Date: 20140603
  Receipt Date: 20140603
  Transmission Date: 20141212
  Serious: Yes (Hospitalization)
  Sender: FDA-Public Use
  Company Number: CN-ASTRAZENECA-2014SE36988

PATIENT
  Age: 22444 Day
  Sex: Female
  Weight: 72 kg

DRUGS (1)
  1. ROSUVASTATIN [Suspect]
     Indication: HYPERLIPIDAEMIA
     Route: 048
     Dates: start: 20130620, end: 20130623

REACTIONS (4)
  - Diarrhoea [Unknown]
  - Pyrexia [Unknown]
  - Asthenia [Unknown]
  - Myalgia [Recovered/Resolved]
